FAERS Safety Report 12436641 (Version 2)
Quarter: 2016Q2

REPORT INFORMATION
  Report Type: Spontaneous
  Country: US (occurrence: US)
  Receive Date: 20160606
  Receipt Date: 20160607
  Transmission Date: 20160815
  Serious: Yes (Other)
  Sender: FDA-Public Use
  Company Number: US-AMGEN-USASP2016070784

PATIENT
  Age: 2 Year
  Sex: Female
  Weight: 11.8 kg

DRUGS (2)
  1. EPOGEN [Suspect]
     Active Substance: ERYTHROPOIETIN
     Indication: NEPHROGENIC ANAEMIA
     Dosage: 1,000 UNITS, UNK
     Route: 042
     Dates: start: 20160221
  2. EPOGEN [Suspect]
     Active Substance: ERYTHROPOIETIN
     Indication: END STAGE RENAL DISEASE

REACTIONS (6)
  - Nephrectomy [Unknown]
  - Surgery [Unknown]
  - Haemoglobin decreased [Unknown]
  - Haematocrit decreased [Unknown]
  - Haemorrhage [Unknown]
  - Peritoneal dialysis [Unknown]
